FAERS Safety Report 7286286-7 (Version None)
Quarter: 2011Q1

REPORT INFORMATION
  Report Type: 
  Country: None (occurrence: None)
  Receive Date: 20110210
  Receipt Date: 20110126
  Transmission Date: 20110831
  Serious: Yes (Hospitalization)
  Sender: FDA-Public Use
  Company Number: PHHY2011JP04566

PATIENT
  Sex: Female
  Weight: 49 kg

DRUGS (4)
  1. DIOVAN [Suspect]
     Indication: HYPERTENSION
     Dosage: 20 MG, QD
     Route: 048
     Dates: start: 20090804, end: 20090907
  2. LOCHOL [Concomitant]
     Dosage: 20 MG, UNK
     Route: 048
     Dates: start: 20050305, end: 20100825
  3. AMLODIPINE [Concomitant]
     Dosage: 2.5 MG, UNK
     Route: 048
     Dates: start: 20091006, end: 20100825
  4. DIOVAN [Suspect]
     Dosage: 40 MG, QD
     Route: 048
     Dates: start: 20090908, end: 20100825

REACTIONS (2)
  - GASTRIC POLYPS [None]
  - BLOOD PRESSURE DIASTOLIC DECREASED [None]
